FAERS Safety Report 16113216 (Version 1)
Quarter: 2019Q1

REPORT INFORMATION
  Report Type: Spontaneous
  Country: US (occurrence: US)
  Receive Date: 20190325
  Receipt Date: 20190325
  Transmission Date: 20190418
  Serious: Yes (Other)
  Sender: FDA-Public Use
  Company Number: US-MYLANLABS-2019M1024062

PATIENT
  Age: 28 Year
  Sex: Male

DRUGS (7)
  1. LAMOTRIGINE. [Suspect]
     Active Substance: LAMOTRIGINE
     Dosage: 200 MILLIGRAM, BID
     Route: 048
     Dates: start: 2017
  2. LAMOTRIGINE. [Suspect]
     Active Substance: LAMOTRIGINE
     Indication: BIPOLAR DISORDER
     Dosage: 200 MILLIGRAM, BID
     Route: 048
  3. LAMOTRIGINE. [Suspect]
     Active Substance: LAMOTRIGINE
     Dosage: 200 MILLIGRAM, BID
     Route: 048
     Dates: start: 201812
  4. LAMOTRIGINE. [Suspect]
     Active Substance: LAMOTRIGINE
     Dosage: 200 MILLIGRAM
     Dates: start: 201901
  5. LAMOTRIGINE. [Suspect]
     Active Substance: LAMOTRIGINE
     Dosage: 200 MILLIGRAM
     Dates: start: 20190204
  6. LAMOTRIGINE. [Suspect]
     Active Substance: LAMOTRIGINE
     Dosage: 200 MILLIGRAM, BID
     Route: 048
     Dates: start: 201811
  7. LAMOTRIGINE. [Suspect]
     Active Substance: LAMOTRIGINE
     Dosage: 200 MILLIGRAM
     Dates: start: 20190203

REACTIONS (8)
  - Therapeutic response shortened [Not Recovered/Not Resolved]
  - Drug ineffective [Not Recovered/Not Resolved]
  - Pain [Not Recovered/Not Resolved]
  - Product taste abnormal [Recovered/Resolved]
  - Mood swings [Not Recovered/Not Resolved]
  - Product substitution issue [Unknown]
  - Feeling abnormal [Not Recovered/Not Resolved]
  - Withdrawal syndrome [Recovered/Resolved]

NARRATIVE: CASE EVENT DATE: 2017
